FAERS Safety Report 9515762 (Version 1)
Quarter: 2013Q1

REPORT INFORMATION
  Report Type: Spontaneous
  Country: US (occurrence: None)
  Receive Date: 20130305
  Receipt Date: 20130305
  Transmission Date: 20140127
  Serious: Yes (Hospitalization)
  Sender: FDA-Public Use
  Company Number: 163-21880-12122647

PATIENT
  Age: 81 Year
  Sex: Female
  Weight: 88.91 kg

DRUGS (14)
  1. REVLIMID (LENALIDOMIDE) (25 MILLIGRAM, CAPSULES) [Suspect]
     Indication: PLASMA CELL MYELOMA
     Dosage: 25 MG, 21 IN 21 D, PO
     Route: 048
     Dates: start: 20120803, end: 20121210
  2. ADVAIR (SERETIDE MITE) (UNKNOWN) [Concomitant]
  3. ALBUTEROL (SALBUTAMOL) (UNKNOWN) [Concomitant]
  4. BENICAR (OLMESARTAN MEDOXOCMIL) (UNKNOWN) [Concomitant]
  5. CITRUCEL (METHYLCELLULOSE) (UNKNOWN) [Concomitant]
  6. DEXAMETHASONE (DEXAMETHASONE) (UNKNOWN) [Concomitant]
  7. DILTIAZEM (DILTIAZEM) (UNKNOWN) (DILTIAZEM) [Concomitant]
  8. FUROSEMIDE (FUROSEMIDE) (UNKNOWN) [Concomitant]
  9. OMEGA 3 (FISH OIL) (UNKNOWN) [Concomitant]
  10. SINGULAIR (MONTELUKAST) (UNKNOWN) [Concomitant]
  11. TRICOR (FENOFIBRATE)  (UNKNOWN) [Concomitant]
  12. VITAMIN B6 (PYRIDOXINE HYDROCHLORIDE) (UNKNOWN) [Concomitant]
  13. VITAMIN D (ERGOCALCIFEROL) (UNKNOWN) [Concomitant]
  14. WARFARIN (WARFARIN) (UNKNOWN) [Concomitant]

REACTIONS (6)
  - Thrombosis [None]
  - Pulmonary embolism [None]
  - Paraesthesia [None]
  - Asthenia [None]
  - Headache [None]
  - Tremor [None]
